FAERS Safety Report 4457500-8 (Version None)
Quarter: 2004Q3

REPORT INFORMATION
  Report Type: 
  Country: None (occurrence: None)
  Receive Date: 20040922
  Receipt Date: 20040907
  Transmission Date: 20050211
  Serious: Yes (Hospitalization)
  Sender: FDA-Public Use
  Company Number: USA040977585

PATIENT
  Age: 59 Year
  Sex: Female

DRUGS (2)
  1. FORTEO [Suspect]
  2. DIGOXIN [Concomitant]

REACTIONS (3)
  - ASTHENIA [None]
  - HYPOTENSION [None]
  - LETHARGY [None]
